FAERS Safety Report 4550528-9 (Version None)
Quarter: 2004Q4

REPORT INFORMATION
  Report Type: 
  Country: None (occurrence: None)
  Receive Date: 20041227
  Receipt Date: 20041116
  Transmission Date: 20050328
  Serious: No
  Sender: FDA-Public Use
  Company Number: 04P-163-0280681-00

PATIENT
  Age: 73 Year
  Sex: Male

DRUGS (13)
  1. HUMIRA [Suspect]
     Indication: RHEUMATOID ARTHRITIS
     Dosage: 40 MG, 1 IN 2 WK, SUBCUTANEOUS
     Route: 058
     Dates: start: 20040901
  2. CALCIUM CARBONATE [Concomitant]
  3. PREDNISONE [Concomitant]
  4. SULFASALAZINE [Concomitant]
  5. FOLIC ACID [Concomitant]
  6. ACETYLSALICYLIC ACID SRT [Concomitant]
  7. FLOMAX [Concomitant]
  8. ENALAPRIL [Concomitant]
  9. GABAPENTIN [Concomitant]
  10. RISEDRONATE SODIUM [Concomitant]
  11. HYDROXYCHLOROQUINE PHOSPHATE [Concomitant]
  12. ZOCOR [Concomitant]
  13. METHOTREXATE [Concomitant]

REACTIONS (2)
  - COUGH [None]
  - NASOPHARYNGITIS [None]
